FAERS Safety Report 8538453-X (Version None)
Quarter: 2012Q3

REPORT INFORMATION
  Report Type: 
  Country: None (occurrence: None)
  Receive Date: 20120712
  Receipt Date: 20120628
  Transmission Date: 20120928
  Serious: Yes (Other)
  Sender: FDA-Public Use
  Company Number: EU-2012-10184

PATIENT
  Age: 81 Year
  Sex: Female

DRUGS (2)
  1. PLETAL [Suspect]
     Indication: INTERMITTENT CLAUDICATION
     Dosage: EL MEDICAMENTO LO HA TOMADO DE FORMA INTERMITENTE A LO LARGO DE TODO ESTE TIEMPO, UNKNOWN
     Dates: start: 20090101
  2. CLOPIDOGREL [Suspect]
     Indication: INTERMITTENT CLAUDICATION
     Dosage: 75 MG MILLIGRAM(S), DAILY DOSE, UNKNOWN
     Dates: start: 20080101

REACTIONS (1)
  - VITREOUS HAEMORRHAGE [None]
